FAERS Safety Report 19899819 (Version 2)
Quarter: 2021Q4

REPORT INFORMATION
  Report Type: Spontaneous
  Country: DE (occurrence: DE)
  Receive Date: 20210929
  Receipt Date: 20211004
  Transmission Date: 20220303
  Serious: Yes (Hospitalization)
  Sender: FDA-Public Use
  Company Number: DE-ADRED-06416-01

PATIENT
  Age: 84 Year
  Sex: Male
  Weight: 92.1 kg

DRUGS (15)
  1. RAMIPRIL [Suspect]
     Active Substance: RAMIPRIL
     Indication: Product used for unknown indication
     Dosage: 2.5 MILLIGRAM, BID (2.5 MG, 1-0-1-0, TABLETTEN)
  2. TORSEMIDE [Suspect]
     Active Substance: TORSEMIDE
     Indication: Product used for unknown indication
     Dosage: 10 MILLIGRAM (10 MG, 2-1-0-0, TABLETTEN)
  3. APIXABAN [Suspect]
     Active Substance: APIXABAN
     Indication: Product used for unknown indication
     Dosage: 2.5 MILLIGRAM, BID (2.5 MG, 1-0-1-0, TABLETTEN)
  4. FOLIC ACID [Concomitant]
     Active Substance: FOLIC ACID
     Dosage: 5 MILLIGRAM, QD (5 MG, 1-0-0-0, TABLETTEN)
  5. CHOLECALCIFEROL [Concomitant]
     Active Substance: CHOLECALCIFEROL
     Dosage: 20000 IU, ONCE WEEKLY, CAPSULES
  6. LEVOTHYROXINE SODIUM\POTASSIUM IODIDE [Concomitant]
     Active Substance: LEVOTHYROXINE SODIUM\POTASSIUM IODIDE
     Dosage: 0.05|0.15 MG, 1-0-0-0, TABLETTEN
  7. SITAGLIPTIN [Concomitant]
     Active Substance: SITAGLIPTIN
     Dosage: 50 MILLIGRAM, QD (50 MG, 1-0-0-0, TABLETTEN)
  8. ATORVASTATIN\EZETIMIBE [Concomitant]
     Active Substance: ATORVASTATIN\EZETIMIBE
     Dosage: 40|10 MG, 0-0-1-0, TABLETTEN
  9. BISOPROLOL [Concomitant]
     Active Substance: BISOPROLOL
     Dosage: 2.5 MILLIGRAM, QD (2.5 MG, 1-0-0-0, TABLETTEN)
  10. ACETAMINOPHEN\CODEINE PHOSPHATE [Concomitant]
     Active Substance: ACETAMINOPHEN\CODEINE PHOSPHATE
     Dosage: 30|500 MG, BEI BEDARF, TABLETTEN
  11. FERROUS GLYCINE SULFATE [Concomitant]
     Active Substance: FERROUS GLYCINE SULFATE
     Dosage: 100 MILLIGRAM, QD (100 MG, 1-0-0-0, KAPSELN)
  12. PANTOPRAZOLE [Concomitant]
     Active Substance: PANTOPRAZOLE
     Dosage: 20 MILLIGRAM, QD
  13. ALLOPURINOL [Concomitant]
     Active Substance: ALLOPURINOL
     Dosage: 600 MILLIGRAM, QD (300 MG, 0.5-0-0-0, TABLETTEN)
  14. B12 ANKERMANN [Concomitant]
     Dosage: 1 MILLIGRAM, QD (1 MG, 1-0-0-0, TABLETTEN)
  15. TAMSULOSIN [Concomitant]
     Active Substance: TAMSULOSIN
     Dosage: 0.4 MILLIGRAM, QD (0.4 MG, 0-0-1-0, RETARD-KAPSELN)

REACTIONS (4)
  - General physical health deterioration [Unknown]
  - Haematochezia [Unknown]
  - Dyspnoea [Unknown]
  - Fatigue [Unknown]
